FAERS Safety Report 4296442-8 (Version None)
Quarter: 2004Q1

REPORT INFORMATION
  Report Type: 
  Country: None (occurrence: None)
  Receive Date: 20040122
  Receipt Date: 20031217
  Transmission Date: 20041129
  Serious: Yes (Other)
  Sender: FDA-Public Use
  Company Number: 2003123614

PATIENT

DRUGS (3)
  1. RELPAX [Suspect]
     Indication: ILL-DEFINED DISORDER
  2. ATORVASTATIN CALCIUM [Suspect]
     Indication: ILL-DEFINED DISORDER
  3. SERTRALINE HCL [Suspect]
     Indication: ILL-DEFINED DISORDER

REACTIONS (3)
  - MUSCULOSKELETAL STIFFNESS [None]
  - NECK PAIN [None]
  - PAIN IN EXTREMITY [None]
